FAERS Safety Report 16702420 (Version 1)
Quarter: 2019Q4

REPORT INFORMATION
  Report Type: Spontaneous
  Country: US (occurrence: US)
  Receive Date: 20190813
  Receipt Date: 20190813
  Transmission Date: 20200122
  Serious: Yes (Hospitalization)
  Sender: FDA-Public Use
  Company Number: None

PATIENT
  Age: 66 Year
  Sex: Male
  Weight: 98.2 kg

DRUGS (5)
  1. SILDENAFIL 20MG PO PRN [Concomitant]
  2. AMLODIPINE BESYLATE/BENAZEPRIL HYDROCHLORIDE [Suspect]
     Active Substance: AMLODIPINE BESYLATE\BENAZEPRIL HYDROCHLORIDE
     Indication: HYPERTENSION
     Dates: start: 20190118, end: 20190611
  3. GABAPENTIN 600MG PO TID [Concomitant]
  4. METHADONE 5MG PO Q6H [Concomitant]
  5. FUROSEMIDE 20MG PO DAILY [Concomitant]

REACTIONS (1)
  - Angioedema [None]

NARRATIVE: CASE EVENT DATE: 20190611
